FAERS Safety Report 8934758 (Version 1)
Quarter: 2012Q4

REPORT INFORMATION
  Report Type: 
  Country: US (occurrence: US)
  Receive Date: 20121129
  Receipt Date: 20121129
  Transmission Date: 20130627
  Serious: No
  Sender: FDA-Public Use
  Company Number: US-ASTRAZENECA-2012SE87621

PATIENT
  Age: 57 Year
  Sex: Female
  Weight: 59 kg

DRUGS (9)
  1. ATENOLOL [Suspect]
     Indication: HYPERTENSION
     Route: 048
  2. PRILOSEC [Suspect]
     Indication: GASTROOESOPHAGEAL REFLUX DISEASE
     Route: 048
     Dates: start: 2011
  3. SEROQUEL XR [Suspect]
     Indication: DEPRESSION
     Route: 048
  4. NORVASC [Concomitant]
     Indication: HYPERTENSION
  5. LIPITOR [Concomitant]
     Indication: BLOOD CHOLESTEROL INCREASED
  6. ZYRTEC [Concomitant]
     Indication: MULTIPLE ALLERGIES
  7. REMERON [Concomitant]
     Indication: DEPRESSION
  8. BUSPIRONE [Concomitant]
     Indication: DEPRESSION
  9. ASPIRIN [Concomitant]

REACTIONS (4)
  - Gastrooesophageal reflux disease [Not Recovered/Not Resolved]
  - Eructation [Not Recovered/Not Resolved]
  - Abdominal discomfort [Not Recovered/Not Resolved]
  - Drug ineffective [Unknown]
